FAERS Safety Report 12098584 (Version 1)
Quarter: 2016Q1

REPORT INFORMATION
  Report Type: Spontaneous
  Country: US (occurrence: US)
  Receive Date: 20160222
  Receipt Date: 20160222
  Transmission Date: 20160526
  Serious: No
  Sender: FDA-Public Use
  Company Number: US-009507513-1602USA007069

PATIENT
  Age: 65 Year
  Sex: Female

DRUGS (2)
  1. BELSOMRA [Suspect]
     Active Substance: SUVOREXANT
     Indication: INSOMNIA
     Dosage: 10 MG, BEDTIME
     Route: 048
  2. LUNESTA [Concomitant]
     Active Substance: ESZOPICLONE
     Dosage: 3 MG, UNKNOWN

REACTIONS (3)
  - Drug ineffective [Not Recovered/Not Resolved]
  - Drug dose omission [Unknown]
  - Sleep disorder [Not Recovered/Not Resolved]
